FAERS Safety Report 24861389 (Version 1)
Quarter: 2025Q1

REPORT INFORMATION
  Report Type: Spontaneous
  Country: US (occurrence: US)
  Receive Date: 20250120
  Receipt Date: 20250120
  Transmission Date: 20250409
  Serious: Yes (Death, Other)
  Sender: SPECGX
  Company Number: US-SPECGX-T202500320

PATIENT
  Age: 34 Year
  Sex: Male

DRUGS (2)
  1. DEXTROAMPHETAMINE SULFATE [Suspect]
     Active Substance: DEXTROAMPHETAMINE SULFATE
     Indication: Product used for unknown indication
     Route: 065
  2. ALCOHOL [Suspect]
     Active Substance: ALCOHOL
     Indication: Product used for unknown indication
     Route: 065

REACTIONS (14)
  - Toxicity to various agents [Fatal]
  - Acute lung injury [Unknown]
  - Acute respiratory distress syndrome [Unknown]
  - Cardiac arrest [Unknown]
  - Depressed level of consciousness [Unknown]
  - Respiratory depression [Unknown]
  - Endotracheal intubation [Unknown]
  - Ventricular arrhythmia [Unknown]
  - Coma [Unknown]
  - Seizure [Unknown]
  - Metabolic acidosis [Unknown]
  - Anion gap [Unknown]
  - Leukocytosis [Unknown]
  - Tachycardia [Unknown]
